FAERS Safety Report 24214048 (Version 1)
Quarter: 2024Q3

REPORT INFORMATION
  Report Type: Spontaneous
  Country: JP (occurrence: JP)
  Receive Date: 20240815
  Receipt Date: 20240815
  Transmission Date: 20241017
  Serious: Yes (Other)
  Sender: MERCK
  Company Number: JP-MSD-M2024-31635

PATIENT
  Age: 101 Year
  Sex: Female

DRUGS (3)
  1. LAGEVRIO [Suspect]
     Active Substance: MOLNUPIRAVIR
     Indication: COVID-19 treatment
     Dosage: 800 MILLIGRAM, BID
     Route: 048
     Dates: start: 20240803, end: 20240807
  2. CELIPROLOL [Concomitant]
     Active Substance: CELIPROLOL
     Indication: Essential hypertension
     Dosage: 100 MILLIGRAM, QD
     Route: 048
  3. LANSOPRAZOLE [Concomitant]
     Active Substance: LANSOPRAZOLE
     Dosage: 15 MILLIGRAM, QD
     Route: 048

REACTIONS (1)
  - Hallucination [Not Recovered/Not Resolved]

NARRATIVE: CASE EVENT DATE: 20240806
